FAERS Safety Report 8062813-7 (Version None)
Quarter: 2012Q1

REPORT INFORMATION
  Report Type: 
  Country: None (occurrence: None)
  Receive Date: 20120123
  Receipt Date: 20120113
  Transmission Date: 20120608
  Serious: Yes (Death)
  Sender: FDA-Public Use
  Company Number: JP-ROCHE-1001246

PATIENT
  Sex: Female
  Weight: 49 kg

DRUGS (9)
  1. ACTARIT [Concomitant]
     Indication: RHEUMATOID ARTHRITIS
     Route: 048
  2. MYONAL [Concomitant]
     Indication: MUSCLE TIGHTNESS
     Route: 048
     Dates: start: 20070606
  3. METHYCOBAL [Concomitant]
     Indication: NEUROPATHY PERIPHERAL
     Route: 048
  4. BREDININ [Concomitant]
     Indication: RHEUMATOID ARTHRITIS
     Route: 048
  5. ISONIAZID [Concomitant]
     Indication: ANTIBIOTIC PROPHYLAXIS
     Route: 048
     Dates: start: 20091023, end: 20101020
  6. LOXONIN [Concomitant]
     Indication: RHEUMATOID ARTHRITIS
     Route: 048
     Dates: end: 20100407
  7. SELBEX [Concomitant]
     Indication: PROPHYLAXIS
     Route: 048
  8. ACTEMRA [Suspect]
     Indication: RHEUMATOID ARTHRITIS
     Route: 041
     Dates: start: 20100113, end: 20110602
  9. INFREE [Concomitant]
     Indication: RHEUMATOID ARTHRITIS
     Route: 048

REACTIONS (2)
  - OVARIAN CANCER [None]
  - MALIGNANT ASCITES [None]
